FAERS Safety Report 8364530-2 (Version None)
Quarter: 2012Q2

REPORT INFORMATION
  Report Type: 
  Country: None (occurrence: None)
  Receive Date: 20120516
  Receipt Date: 20120510
  Transmission Date: 20120825
  Serious: Yes (Hospitalization, Disabling)
  Sender: FDA-Public Use
  Company Number: US-MERCK-1201USA00810

PATIENT
  Age: 70 Year
  Sex: Female

DRUGS (3)
  1. BONIVA [Suspect]
     Route: 048
     Dates: start: 20030101, end: 20100101
  2. FOSAMAX [Suspect]
     Indication: OSTEOPENIA
     Route: 048
     Dates: start: 20030101, end: 20090101
  3. FOSAMAX [Suspect]
     Indication: OSTEOPOROSIS
     Route: 048
     Dates: start: 20030101, end: 20090101

REACTIONS (3)
  - ADVERSE EVENT [None]
  - FOOT FRACTURE [None]
  - FEMUR FRACTURE [None]
